FAERS Safety Report 6585282-2 (Version None)
Quarter: 2010Q1

REPORT INFORMATION
  Report Type: 
  Country: None (occurrence: None)
  Receive Date: 20100217
  Receipt Date: 20100108
  Transmission Date: 20100710
  Serious: Yes (Hospitalization)
  Sender: FDA-Public Use
  Company Number: JP-SANOFI-AVENTIS-F01200901022

PATIENT
  Age: 74 Year
  Sex: Male
  Weight: 52 kg

DRUGS (10)
  1. CLOPIDOGREL BISULFATE [Suspect]
     Route: 048
     Dates: start: 20080912
  2. CLOPIDOGREL BISULFATE [Suspect]
     Indication: LACUNAR INFARCTION
     Route: 048
     Dates: start: 20080912
  3. CLOPIDOGREL BISULFATE [Suspect]
     Route: 048
  4. CLOPIDOGREL BISULFATE [Suspect]
     Route: 048
  5. ITAVASTATIN [Concomitant]
     Route: 048
  6. SEREVENT [Concomitant]
     Route: 050
     Dates: start: 20030304
  7. MUCODYNE [Concomitant]
     Route: 048
     Dates: start: 20060214
  8. CICLESONIDE [Concomitant]
     Route: 050
     Dates: start: 20080325
  9. SINGULAIR ^DIECKMANN^ [Concomitant]
     Route: 048
     Dates: start: 20030304
  10. NITRODERM [Concomitant]
     Route: 058
     Dates: start: 20090122

REACTIONS (1)
  - ARTERIAL THROMBOSIS [None]
